FAERS Safety Report 10730113 (Version 4)
Quarter: 2015Q4

REPORT INFORMATION
  Report Type: Report from Study
  Country: JP (occurrence: JP)
  Receive Date: 20150122
  Receipt Date: 20151108
  Transmission Date: 20160304
  Serious: Yes (Death, Other)
  Sender: FDA-Public Use
  Company Number: JP-ALEXION PHARMACEUTICALS INC-A201500160

PATIENT
  Age: 71 Year
  Sex: Female
  Weight: 147 kg

DRUGS (10)
  1. SOLIRIS [Suspect]
     Active Substance: ECULIZUMAB
     Indication: PAROXYSMAL NOCTURNAL HAEMOGLOBINURIA
     Dosage: 600 MG, QW
     Route: 042
     Dates: start: 20101126, end: 20101217
  2. SOLIRIS [Suspect]
     Active Substance: ECULIZUMAB
     Dosage: 900 MG, Q2W
     Route: 042
     Dates: start: 20101225, end: 20141212
  3. BONALON [Concomitant]
     Active Substance: ALENDRONATE SODIUM
     Indication: PRODUCT USED FOR UNKNOWN INDICATION
     Dosage: 35 MG, DAILY
     Route: 065
     Dates: start: 20100903, end: 20141225
  4. URSO [Concomitant]
     Active Substance: URSODIOL
     Indication: PRODUCT USED FOR UNKNOWN INDICATION
     Dosage: 50 MG, DAILY
     Route: 065
     Dates: start: 20120823, end: 20141225
  5. FEBURIC [Concomitant]
     Active Substance: FEBUXOSTAT
     Indication: PRODUCT USED FOR UNKNOWN INDICATION
     Dosage: 20 MG, DAILY
     Route: 065
     Dates: start: 20120420, end: 20141225
  6. OMEPRAL                            /00661201/ [Concomitant]
     Active Substance: OMEPRAZOLE
     Indication: PRODUCT USED FOR UNKNOWN INDICATION
     Dosage: 10 MG, DAILY
     Route: 065
     Dates: start: 20120420, end: 20141225
  7. PREDONINE [Concomitant]
     Active Substance: PREDNISOLONE\PREDNISOLONE ACETATE\PREDNISOLONE SODIUM SUCCINATE
     Indication: PAROXYSMAL NOCTURNAL HAEMOGLOBINURIA
     Dosage: 5 MG, DAILY
     Route: 065
     Dates: start: 20110401, end: 20141225
  8. EXJADE [Concomitant]
     Active Substance: DEFERASIROX
     Indication: PAROXYSMAL NOCTURNAL HAEMOGLOBINURIA
     Dosage: 500 MG, DAILY
     Route: 065
     Dates: start: 20130802, end: 20141225
  9. BIO-THREE [Concomitant]
     Active Substance: HERBALS
     Indication: PRODUCT USED FOR UNKNOWN INDICATION
     Dosage: 3 DF, DAILY
     Route: 065
     Dates: start: 20120719, end: 20141225
  10. ITRIZOLE [Concomitant]
     Active Substance: ITRACONAZOLE
     Indication: PRODUCT USED FOR UNKNOWN INDICATION
     Dosage: 10 ML, DAILY
     Route: 065
     Dates: start: 20141012, end: 20141225

REACTIONS (9)
  - Cellulitis [Fatal]
  - Condition aggravated [Fatal]
  - Pneumonia [Unknown]
  - Arthritis [Unknown]
  - Cholestasis [Unknown]
  - Myelodysplastic syndrome [Fatal]
  - Condition aggravated [Unknown]
  - Pancytopenia [Unknown]
  - Sepsis [Fatal]

NARRATIVE: CASE EVENT DATE: 201412
